FAERS Safety Report 8851022 (Version 1)
Quarter: 2012Q4

REPORT INFORMATION
  Report Type: Report from Study
  Country: CA (occurrence: CA)
  Receive Date: 20121019
  Receipt Date: 20121019
  Transmission Date: 20130627
  Serious: Yes (Hospitalization)
  Sender: FDA-Public Use
  Company Number: CA-JNJFOC-20121007061

PATIENT
  Sex: Male
  Weight: 73.03 kg

DRUGS (6)
  1. REMICADE [Suspect]
     Indication: COLITIS ULCERATIVE
     Route: 042
     Dates: start: 20120813, end: 20120830
  2. IRON [Concomitant]
     Route: 048
  3. PREDNISONE [Concomitant]
     Route: 048
  4. STATEX [Concomitant]
     Route: 048
  5. GRAVOL [Concomitant]
     Dosage: as needed
     Route: 048
  6. VITAMIN B12 [Concomitant]
     Dosage: as needed
     Route: 030

REACTIONS (3)
  - Diarrhoea haemorrhagic [Unknown]
  - Gastroenteritis viral [Unknown]
  - General physical health deterioration [Unknown]
